FAERS Safety Report 7099679-8 (Version None)
Quarter: 2010Q4

REPORT INFORMATION
  Report Type: 
  Country: None (occurrence: None)
  Receive Date: 20101112
  Receipt Date: 20101110
  Transmission Date: 20110411
  Serious: Yes (Other)
  Sender: FDA-Public Use
  Company Number: BR-PFIZER INC-2010123501

PATIENT
  Age: 37 Year
  Sex: Female
  Weight: 72 kg

DRUGS (3)
  1. CHAMPIX [Suspect]
     Indication: SMOKING CESSATION THERAPY
     Dosage: 0.5 MG, 1X/DAY
     Route: 048
     Dates: start: 20100917, end: 20100101
  2. CHAMPIX [Suspect]
     Dosage: 2 MG, 1X/DAY
     Route: 048
     Dates: start: 20100101, end: 20100101
  3. CHAMPIX [Suspect]
     Dosage: 1 MG, 1X/DAY
     Route: 048
     Dates: start: 20100101

REACTIONS (2)
  - ANXIETY [None]
  - NERVOUSNESS [None]
